FAERS Safety Report 6382706-0 (Version None)
Quarter: 2009Q3

REPORT INFORMATION
  Report Type: 
  Country: None (occurrence: None)
  Receive Date: 20090928
  Receipt Date: 20090928
  Transmission Date: 20100115
  Serious: Yes (Hospitalization)
  Sender: FDA-Public Use
  Company Number: None

PATIENT
  Age: 35 Year
  Sex: Female
  Weight: 84.8226 kg

DRUGS (1)
  1. HEPARIN [Suspect]
     Dosage: 5ML MONTHLY INJ
     Dates: start: 20070501, end: 20090922

REACTIONS (12)
  - ARRHYTHMIA [None]
  - BRADYCARDIA [None]
  - CHILLS [None]
  - COUGH [None]
  - CYANOSIS [None]
  - DYSPNOEA [None]
  - HYPOXIA [None]
  - NAIL DISCOLOURATION [None]
  - OXYGEN SATURATION DECREASED [None]
  - SIMILAR REACTION ON PREVIOUS EXPOSURE TO DRUG [None]
  - TACHYCARDIA [None]
  - TREMOR [None]
